FAERS Safety Report 4419246-1 (Version None)
Quarter: 2004Q3

REPORT INFORMATION
  Report Type: 
  Country: None (occurrence: None)
  Receive Date: 20040809
  Receipt Date: 20040122
  Transmission Date: 20050211
  Serious: No
  Sender: FDA-Public Use
  Company Number: US-GLAXOSMITHKLINE-A0494730A

PATIENT
  Age: 27 Year
  Sex: Male

DRUGS (1)
  1. PAXIL [Suspect]
     Dosage: 30MG PER DAY
     Route: 048
     Dates: start: 20020101, end: 20040115

REACTIONS (4)
  - DRUG WITHDRAWAL SYNDROME [None]
  - FATIGUE [None]
  - LOSS OF LIBIDO [None]
  - SENSORY DISTURBANCE [None]
